FAERS Safety Report 17122674 (Version 1)
Quarter: 2019Q4

REPORT INFORMATION
  Report Type: Spontaneous
  Country: US (occurrence: US)
  Receive Date: 20191206
  Receipt Date: 20191206
  Transmission Date: 20200122
  Serious: No
  Sender: FDA-Public Use
  Company Number: US-ROCHE-2415550

PATIENT
  Sex: Male

DRUGS (1)
  1. OCREVUS [Suspect]
     Active Substance: OCRELIZUMAB
     Indication: MULTIPLE SCLEROSIS
     Dosage: LAST INFUSION ON: JUL/2019
     Route: 065
     Dates: start: 2018

REACTIONS (4)
  - T-lymphocyte count decreased [Unknown]
  - Lymphocyte count decreased [Unknown]
  - CD4/CD8 ratio increased [Unknown]
  - CD8 lymphocytes decreased [Unknown]
